FAERS Safety Report 14871951 (Version 2)
Quarter: 2018Q2

REPORT INFORMATION
  Report Type: Spontaneous
  Country: IT (occurrence: IT)
  Receive Date: 20180509
  Receipt Date: 20180511
  Transmission Date: 20180711
  Serious: Yes (Hospitalization)
  Sender: FDA-Public Use
  Company Number: IT-009507513-1805ITA002052

PATIENT
  Age: 84 Year
  Sex: Male

DRUGS (6)
  1. TRITTICO [Concomitant]
     Active Substance: TRAZODONE HYDROCHLORIDE
  2. EBIXA [Concomitant]
     Active Substance: MEMANTINE HYDROCHLORIDE
  3. DELORAZEPAM [Concomitant]
     Active Substance: DELORAZEPAM
  4. ISOSORBIDE MONONITRATE. [Suspect]
     Active Substance: ISOSORBIDE MONONITRATE
     Indication: HYPERTENSION
     Dosage: UNK
     Dates: start: 20170901, end: 20170916
  5. SINEMET [Suspect]
     Active Substance: CARBIDOPA\LEVODOPA
     Indication: PARKINSON^S DISEASE
     Dosage: 225 MG, QD
     Route: 048
     Dates: start: 20170901, end: 20170916
  6. SEROQUEL [Concomitant]
     Active Substance: QUETIAPINE FUMARATE

REACTIONS (2)
  - Apathy [Unknown]
  - Hypotension [Unknown]

NARRATIVE: CASE EVENT DATE: 20170916
